FAERS Safety Report 7658563-9 (Version None)
Quarter: 2011Q3

REPORT INFORMATION
  Report Type: 
  Country: None (occurrence: None)
  Receive Date: 20110802
  Receipt Date: 20110719
  Transmission Date: 20111222
  Serious: Yes (Other)
  Sender: FDA-Public Use
  Company Number: 2011P1007780

PATIENT
  Age: 2 Month
  Sex: Male

DRUGS (4)
  1. SULFADIAZINE [Concomitant]
  2. DARAPRIM [Suspect]
     Indication: CYTOGENETIC ABNORMALITY
     Dosage: 1.4 MG;QD;PO
     Route: 048
     Dates: start: 20110713
  3. DARAPRIM [Suspect]
     Indication: CYTOGENETIC ABNORMALITY
     Dosage: 1.4 MG;QD;PO
     Route: 048
     Dates: start: 20110101
  4. LIQUID LEUCOVORIN [Concomitant]

REACTIONS (1)
  - NEUTROPENIA [None]
